FAERS Safety Report 4802894-4 (Version None)
Quarter: 2005Q4

REPORT INFORMATION
  Report Type: 
  Country: None (occurrence: None)
  Receive Date: 20051019
  Receipt Date: 20051013
  Transmission Date: 20060501
  Serious: Yes (Other)
  Sender: FDA-Public Use
  Company Number: PT-JNJFOC-20051003119

PATIENT
  Age: 50 Year
  Sex: Female

DRUGS (3)
  1. REMICADE [Suspect]
     Indication: ANKYLOSING SPONDYLITIS
     Dosage: 2 INFUSIONS: WEEKS 0 AND 2.
     Route: 042
  2. SULFASSALAZIN [Concomitant]
     Indication: ANKYLOSING SPONDYLITIS
     Route: 065
  3. MELOXICAM [Concomitant]
     Indication: ANKYLOSING SPONDYLITIS
     Route: 065

REACTIONS (4)
  - MOUTH ULCERATION [None]
  - MUMPS [None]
  - TONSILLITIS [None]
  - VAGINAL ULCERATION [None]
